FAERS Safety Report 24538381 (Version 1)
Quarter: 2024Q4

REPORT INFORMATION
  Report Type: Spontaneous
  Country: PL (occurrence: PL)
  Receive Date: 20241023
  Receipt Date: 20241023
  Transmission Date: 20250115
  Serious: Yes (Hospitalization)
  Sender: BANNER
  Company Number: None

PATIENT
  Age: 67 Year
  Sex: Female

DRUGS (8)
  1. ESTAZOLAM [Suspect]
     Active Substance: ESTAZOLAM
     Indication: Insomnia
  2. SERTRALINE [Suspect]
     Active Substance: SERTRALINE HYDROCHLORIDE
     Indication: Depression
  3. IBUPROFEN [Suspect]
     Active Substance: IBUPROFEN
     Indication: Body temperature increased
  4. ACETAMINOPHEN [Suspect]
     Active Substance: ACETAMINOPHEN
     Indication: Body temperature increased
  5. AMLODIPINE\PERINDOPRIL [Concomitant]
     Active Substance: AMLODIPINE\PERINDOPRIL
     Indication: Hypertension
     Dosage: 10+10 MG
  6. PERAZINE [Suspect]
     Active Substance: PERAZINE
     Indication: Depression
     Dosage: PER NIGHT
  7. METAMIZOLE [Suspect]
     Active Substance: METAMIZOLE
     Indication: Body temperature increased
  8. ZOLPIDEM [Suspect]
     Active Substance: ZOLPIDEM TARTRATE
     Indication: Insomnia

REACTIONS (3)
  - Pneumonia [Recovering/Resolving]
  - Therapeutic product effect incomplete [Unknown]
  - Nightmare [Unknown]
